FAERS Safety Report 24553740 (Version 1)
Quarter: 2024Q4

REPORT INFORMATION
  Report Type: Report from Study
  Country: US (occurrence: US)
  Receive Date: 20241028
  Receipt Date: 20241028
  Transmission Date: 20250115
  Serious: No
  Sender: ROCHE
  Company Number: US-ROCHE-3560762

PATIENT
  Age: 17 Year
  Sex: Male

DRUGS (1)
  1. NUTROPIN AQ [Suspect]
     Active Substance: SOMATROPIN
     Indication: Prader-Willi syndrome
     Dosage: STRENGTH: 10MG/2ML
     Route: 065
     Dates: start: 2007

REACTIONS (6)
  - Injection site bruising [Unknown]
  - Injection site haemorrhage [Unknown]
  - Product quality issue [Unknown]
  - Product dose omission issue [Unknown]
  - Off label use [Unknown]
  - Device defective [Unknown]

NARRATIVE: CASE EVENT DATE: 20070101
